FAERS Safety Report 8947239 (Version 1)
Quarter: 2012Q4

REPORT INFORMATION
  Report Type: 
  Country: US (occurrence: US)
  Receive Date: 20121205
  Receipt Date: 20121205
  Transmission Date: 20130627
  Serious: Yes (Hospitalization)
  Sender: FDA-Public Use
  Company Number: US-PFIZER INC-2012301996

PATIENT
  Age: 56 Year
  Sex: Female

DRUGS (1)
  1. DOXYCYCLINE HYCLATE [Suspect]
     Indication: CELLULITIS OF ARM
     Dosage: UNK

REACTIONS (1)
  - Hallucination, visual [Recovered/Resolved]
